FAERS Safety Report 23659738 (Version 1)
Quarter: 2024Q1

REPORT INFORMATION
  Report Type: Spontaneous
  Country: US (occurrence: US)
  Receive Date: 20240321
  Receipt Date: 20240321
  Transmission Date: 20240409
  Serious: No
  Sender: FDA-Public Use
  Company Number: US-SA-SAC20240319000139

PATIENT
  Sex: Female
  Weight: 65.77 kg

DRUGS (12)
  1. DUPIXENT [Suspect]
     Active Substance: DUPILUMAB
     Indication: Dermatitis atopic
     Dosage: 300 MG, QOW
     Route: 058
  2. CYANOCOBALAMIN [Concomitant]
     Active Substance: CYANOCOBALAMIN
  3. VALSARTAN [Concomitant]
     Active Substance: VALSARTAN
  4. ICOSAPENT ETHYL [Concomitant]
     Active Substance: ICOSAPENT ETHYL
  5. VITAMIN D3 [Concomitant]
     Active Substance: CHOLECALCIFEROL
  6. MINERALS\VITAMINS [Concomitant]
     Active Substance: MINERALS\VITAMINS
  7. ESTRADIOL [Concomitant]
     Active Substance: ESTRADIOL
  8. ROSUVASTATIN CALCIUM [Concomitant]
     Active Substance: ROSUVASTATIN CALCIUM
  9. TRAVATAN Z [Concomitant]
     Active Substance: TRAVOPROST
  10. TIMOLOL MALEATE [Concomitant]
     Active Substance: TIMOLOL MALEATE
  11. MAGNESIUM [Concomitant]
     Active Substance: MAGNESIUM
  12. PROBIOTICS NOS [Concomitant]
     Active Substance: PROBIOTICS NOS

REACTIONS (1)
  - Limb discomfort [Unknown]
